FAERS Safety Report 6587731-2 (Version None)
Quarter: 2010Q1

REPORT INFORMATION
  Report Type: 
  Country: None (occurrence: None)
  Receive Date: 20100217
  Receipt Date: 20100217
  Transmission Date: 20100710
  Serious: Yes (Life-Threatening, Hospitalization)
  Sender: FDA-Public Use
  Company Number: None

PATIENT
  Age: 45 Year
  Sex: Male
  Weight: 56.9718 kg

DRUGS (2)
  1. LEVAQUIN [Suspect]
     Indication: ANTIBIOTIC THERAPY
     Dosage: LEVAQUIN 500MG DAILY IV BOLUS, SINGLE DOSE
     Route: 040
     Dates: start: 20100216, end: 20100216
  2. LEVAQUIN [Suspect]
     Indication: PREOPERATIVE CARE
     Dosage: LEVAQUIN 500MG DAILY IV BOLUS, SINGLE DOSE
     Route: 040
     Dates: start: 20100216, end: 20100216

REACTIONS (4)
  - BLOOD PRESSURE DECREASED [None]
  - RASH ERYTHEMATOUS [None]
  - RASH GENERALISED [None]
  - TACHYCARDIA [None]
